FAERS Safety Report 9007119 (Version 2)
Quarter: 2014Q3

REPORT INFORMATION
  Report Type: Spontaneous
  Country: US (occurrence: US)
  Receive Date: 20130110
  Receipt Date: 20140812
  Transmission Date: 20150326
  Serious: Yes (Life-Threatening, Hospitalization, Disabling)
  Sender: FDA-Public Use
  Company Number: US-BAYER-2013-001581

PATIENT
  Age: 44 Year
  Sex: Female
  Weight: 82 kg

DRUGS (35)
  1. PANTOPRAZOLE SODIUM [Concomitant]
     Active Substance: PANTOPRAZOLE SODIUM
     Indication: GASTRIC DISORDER
     Dosage: 40 MG, ONE TABLET OM ? HOUR BEFORE BREAKFAST
     Route: 048
  2. ZOLPIDEM [Concomitant]
     Active Substance: ZOLPIDEM\ZOLPIDEM TARTRATE
     Indication: SLEEP DISORDER
     Dosage: 5 MG, HS AS NEEDED
     Route: 048
  3. CLONIDINE. [Concomitant]
     Active Substance: CLONIDINE
     Dosage: 0.1 MG, UNK
  4. HYDROCODONE [Concomitant]
     Active Substance: HYDROCODONE
     Indication: BACK PAIN
  5. YASMIN [Suspect]
     Active Substance: DROSPIRENONE\ETHINYL ESTRADIOL
  6. PREDNISOLONE ACETATE. [Concomitant]
     Active Substance: PREDNISOLONE ACETATE
     Indication: INFLAMMATION
     Dosage: INSTILL 2 DROPS TWICE A DAY
     Route: 047
  7. AMLODIPINE BESYLATE. [Concomitant]
     Active Substance: AMLODIPINE BESYLATE
     Indication: BLOOD PRESSURE ABNORMAL
     Dosage: 5 MG, ONE TABLET ONE TIME EACH DAY
     Route: 048
  8. FLUNISOLIDE. [Concomitant]
     Active Substance: FLUNISOLIDE
     Indication: MULTIPLE ALLERGIES
     Dosage: 0.025 %, SPRAY IN EACH NOSTRIL BID
     Route: 045
     Dates: start: 20120410
  9. ZARAH [Suspect]
     Active Substance: DROSPIRENONE\ETHINYL ESTRADIOL
  10. METOPROLOL TARTRATE. [Concomitant]
     Active Substance: METOPROLOL TARTRATE
     Indication: BLOOD PRESSURE ABNORMAL
     Dosage: ONE-HALF TABLET TWICE A DAY
     Route: 048
     Dates: start: 20120416
  11. POTASSIUM CHLORIDE. [Concomitant]
     Active Substance: POTASSIUM CHLORIDE
     Indication: ELECTROLYTE SUBSTITUTION THERAPY
     Dosage: 10 MEQ, FOUR TABLETS BID
     Route: 048
     Dates: start: 20120417
  12. SULINDAC. [Concomitant]
     Active Substance: SULINDAC
     Indication: PAIN
     Dosage: 150 MG, BID TAKE WITH FOOD
     Route: 048
  13. AMITRIPTYLINE HCL [Concomitant]
     Active Substance: AMITRIPTYLINE
     Indication: MIGRAINE
  14. TOPIRAMATE. [Concomitant]
     Active Substance: TOPIRAMATE
     Indication: MIGRAINE PROPHYLAXIS
     Dosage: 25 MG, ONE TABLET ONE TIME EACH DAY
     Route: 048
  15. HYDROCHLOROTHIAZIDE. [Concomitant]
     Active Substance: HYDROCHLOROTHIAZIDE
     Indication: BLOOD PRESSURE ABNORMAL
     Dosage: 25 MG, ONE-HALF TABLET OM
     Route: 048
     Dates: start: 20120417
  16. GIANVI [Suspect]
     Active Substance: DROSPIRENONE\ETHINYL ESTRADIOL
  17. OCELLA [Suspect]
     Active Substance: DROSPIRENONE\ETHINYL ESTRADIOL
  18. LISINOPRIL. [Concomitant]
     Active Substance: LISINOPRIL
     Indication: MIGRAINE PROPHYLAXIS
     Dosage: 20 MG, TAKE ONE-HALF TABLET ONE TIME EACH DAY
     Route: 048
  19. BUTALBITAL, ACETAMINOPHEN, CAFFEINE [Concomitant]
     Active Substance: ACETAMINOPHEN\BUTALBITAL\CAFFEINE
     Indication: HEADACHE
     Dosage: 325MG/50MG/40MG, 2 TABLETS ONE TIME PER DAY
     Route: 048
  20. AMITRIPTYLINE HCL [Concomitant]
     Active Substance: AMITRIPTYLINE
     Indication: DEPRESSION
     Dosage: 50 MG, TWO TABLETS EVERY MORNING AND TWO TABLETS AT BEDTIME
     Route: 048
  21. ZOLMITRIPTAN. [Concomitant]
     Active Substance: ZOLMITRIPTAN
     Indication: HEADACHE
     Dosage: 5 MG, SPRAY ONE SPRAY IN ONE NOSTRIL AS NEEDED, MAY REPEAT DOSE AFTER 2 HOURS IF NEEDED
     Route: 045
  22. TUBERSOL [Concomitant]
     Active Substance: TUBERCULIN PURIFIED PROTEIN DERIVATIVE
     Dosage: 0.1 ML, UNK
     Route: 023
     Dates: start: 20120410
  23. CYMBALTA [Concomitant]
     Active Substance: DULOXETINE HYDROCHLORIDE
     Indication: MIGRAINE
  24. YAZ [Suspect]
     Active Substance: DROSPIRENONE\ETHINYL ESTRADIOL
     Indication: ACNE
  25. TIZANIDINE HYDROCHLORIDE. [Concomitant]
     Active Substance: TIZANIDINE HYDROCHLORIDE
     Indication: MUSCLE SPASMS
     Dosage: 2 MG, ONE TABLET EVERY MORNING AND TAKE ONE TABLET EVERY DAY AT NOON TIME AND TWO TABLETS AT BEDTIME
     Route: 048
  26. CITALOPRAM HYDROBROMIDE. [Concomitant]
     Active Substance: CITALOPRAM HYDROBROMIDE
     Indication: ANXIETY
     Dosage: 40 MG, ONE-HALF TABLET ONE TIME EACH DAY
     Route: 048
  27. FIORICET [Concomitant]
     Active Substance: ACETAMINOPHEN\BUTALBITAL\CAFFEINE
  28. CYMBALTA [Concomitant]
     Active Substance: DULOXETINE HYDROCHLORIDE
     Indication: PAIN
  29. BEYAZ [Suspect]
     Active Substance: DROSPIRENONE\ETHINYL ESTRADIOL\LEVOMEFOLATE CALCIUM
  30. SAFYRAL [Suspect]
     Active Substance: DROSPIRENONE\ETHINYL ESTRADIOL\LEVOMEFOLATE CALCIUM
  31. CAPSAICIN [Concomitant]
     Active Substance: CAPSAICIN
     Indication: PAIN
     Dosage: 0.025 %, TID, APPLY A THIN FILM TOPICALLY THREE TIMES A DAY TO AFFECTED AREA
     Route: 061
  32. CIPROFLOXACIN HCL [Concomitant]
     Active Substance: CIPROFLOXACIN HYDROCHLORIDE
     Indication: INFECTION
     Dosage: 0.3 %, INSTILL DROPS INTO LEFT EYE QID
     Route: 047
  33. DIAZEPAM. [Concomitant]
     Active Substance: DIAZEPAM
     Dosage: 10 MG, ONE TABLET ONE TIME EACH DAY. MAY TAKE 1 EXTRA TABLET AS NEEDED
     Route: 048
  34. BACTRIM [Concomitant]
     Active Substance: SULFAMETHOXAZOLE\TRIMETHOPRIM
  35. HYDROCODONE BIT/APAP [Concomitant]
     Active Substance: ACETAMINOPHEN\HYDROCODONE BITARTRATE
     Indication: PAIN
     Dosage: ACETAMINOPHEN 500 MG / HYDROCODONE 5 MG, TABLET TWICE A DAY AS NEEDED
     Route: 048

REACTIONS (9)
  - Pulmonary embolism [None]
  - Injury [None]
  - Anxiety [None]
  - Pain [None]
  - General physical health deterioration [None]
  - Intracranial venous sinus thrombosis [None]
  - Emotional distress [None]
  - Embolism venous [None]
  - Anhedonia [None]

NARRATIVE: CASE EVENT DATE: 20120420
